FAERS Safety Report 8131754-9 (Version None)
Quarter: 2012Q1

REPORT INFORMATION
  Report Type: 
  Country: None (occurrence: None)
  Receive Date: 20120213
  Receipt Date: 20120201
  Transmission Date: 20120608
  Serious: Yes (Other)
  Sender: FDA-Public Use
  Company Number: US-JNJFOC-20120203252

PATIENT
  Age: 62 Year
  Sex: Female

DRUGS (12)
  1. REMICADE [Suspect]
     Indication: COLITIS
     Route: 042
  2. REMICADE [Suspect]
     Route: 042
     Dates: start: 20080701
  3. TINCTURE OF OPIUM [Suspect]
     Indication: PRODUCT USED FOR UNKNOWN INDICATION
     Route: 065
  4. REMICADE [Suspect]
     Route: 042
     Dates: start: 20091101
  5. BUDESONIDE [Suspect]
     Indication: PRODUCT USED FOR UNKNOWN INDICATION
     Route: 065
  6. REMICADE [Suspect]
     Route: 042
  7. PREDNISONE TAB [Concomitant]
     Indication: ARTHROPATHY
     Route: 065
  8. PREDNISONE TAB [Concomitant]
     Indication: DIARRHOEA
     Route: 065
  9. AZATHIOPRINE [Concomitant]
     Indication: DIARRHOEA
     Route: 065
  10. METHOTREXATE [Concomitant]
     Indication: ARTHROPATHY
     Route: 065
  11. REMICADE [Suspect]
     Route: 042
  12. REMICADE [Suspect]
     Route: 042
     Dates: start: 20101201

REACTIONS (3)
  - DRUG INEFFECTIVE [None]
  - DIARRHOEA [None]
  - ARTHROPATHY [None]
